FAERS Safety Report 11202163 (Version 1)
Quarter: 2015Q2

REPORT INFORMATION
  Report Type: Report from Study
  Country: FR (occurrence: FR)
  Receive Date: 20150619
  Receipt Date: 20150619
  Transmission Date: 20150821
  Serious: Yes (Death, Other)
  Sender: FDA-Public Use
  Company Number: FR-009507513-1503FRA003215

PATIENT
  Age: 74 Year
  Sex: Male
  Weight: 98 kg

DRUGS (1)
  1. PEMBROLIZUMAB. [Suspect]
     Active Substance: PEMBROLIZUMAB
     Indication: METASTATIC MALIGNANT MELANOMA
     Dosage: UNK
     Route: 042
     Dates: start: 20140710

REACTIONS (4)
  - Acute kidney injury [Unknown]
  - Acute pulmonary oedema [Unknown]
  - Malignant neoplasm progression [Fatal]
  - Anaemia [Unknown]

NARRATIVE: CASE EVENT DATE: 20140710
